FAERS Safety Report 4382823-0 (Version None)
Quarter: 2004Q2

REPORT INFORMATION
  Report Type: 
  Country: None (occurrence: None)
  Receive Date: 20040602
  Receipt Date: 20031001
  Transmission Date: 20050107
  Serious: Yes (Life-Threatening, Hospitalization)
  Sender: FDA-Public Use
  Company Number: NSADSS2002019312

PATIENT
  Age: 42 Year
  Sex: Female
  Weight: 91.173 kg

DRUGS (16)
  1. PROPULSID [Suspect]
     Indication: GASTROOESOPHAGEAL REFLUX DISEASE
     Dosage: 10 MG, 3 IN 1 DAY, ORAL
     Route: 048
     Dates: start: 19930924, end: 20000406
  2. REGLAN [Concomitant]
  3. PROPRANOLOL [Concomitant]
  4. ZANTAC (RANITIDINE HYDOCHLORIDE) [Concomitant]
  5. ATIVAN [Concomitant]
  6. ESTRATEST [Concomitant]
  7. VITAMIN E [Concomitant]
  8. ESTRACE [Concomitant]
  9. KLONOPIN (OMEPRAZOLE) [Concomitant]
  10. CLINDAMYCIN HCL [Concomitant]
  11. OSCAL (CALCIUM CARBONATE) [Concomitant]
  12. ZESTRIL [Concomitant]
  13. SECTRAL [Concomitant]
  14. COMBIVENT [Concomitant]
  15. LASIX [Concomitant]
  16. KLONOPIN [Concomitant]

REACTIONS (11)
  - ALOPECIA [None]
  - ASTHMA [None]
  - CALCINOSIS [None]
  - CARDIAC VALVE DISEASE [None]
  - CHEST PAIN [None]
  - DYSPNOEA [None]
  - ELECTROCARDIOGRAM QT PROLONGED [None]
  - MEDICATION ERROR [None]
  - PALPITATIONS [None]
  - SCLERODERMA [None]
  - SUPRAVENTRICULAR TACHYCARDIA [None]
